FAERS Safety Report 5727366-4 (Version None)
Quarter: 2008Q2

REPORT INFORMATION
  Report Type: 
  Country: None (occurrence: None)
  Receive Date: 20080505
  Receipt Date: 20080425
  Transmission Date: 20081010
  Serious: Yes (Hospitalization, Other)
  Sender: FDA-Public Use
  Company Number: US-ROCHE-432362

PATIENT
  Sex: Female
  Weight: 53.5 kg

DRUGS (9)
  1. ACCUTANE [Suspect]
     Route: 048
     Dates: start: 20011023, end: 20020413
  2. ACCUTANE [Suspect]
     Route: 048
     Dates: start: 20020724, end: 20021124
  3. ZYRTEC-D 12 HOUR [Concomitant]
     Dosage: DOSAGE REPORTED ON 16 APRIL 2003 1 TAB BID. DOSAGE REPORTED ON 20 MAY 2003 ^INCREASE FOR QD TO BID^.
     Route: 048
  4. ZYRTEC-D 12 HOUR [Concomitant]
     Dosage: DOSAGE REPORTED ON 16 APRIL 2003 1 TAB BID. DOSAGE REPORTED ON 20 MAY 2003 ^INCREASE FOR QD TO BID^.
     Route: 048
  5. SINGULAIR [Concomitant]
     Route: 048
  6. PERIACTIN [Concomitant]
     Dosage: DOSAGE AND FORMULATION REPORTED AS ONE QHSX6WEEK.
     Route: 048
     Dates: start: 20020304
  7. FLAGYL [Concomitant]
     Route: 048
     Dates: start: 20020321, end: 20020328
  8. LACTINEX [Concomitant]
     Dosage: DURATION REPORTED FOR 6 WEEKS. FORMULATION: CHEWABLE TABLETS.
     Route: 048
     Dates: start: 20070321
  9. TESSALON [Concomitant]
     Indication: COUGH
     Dosage: DOSAGE REGIMEN REPORTED FOR PRN.
     Route: 048
     Dates: start: 20020903

REACTIONS (7)
  - COLITIS [None]
  - CROHN'S DISEASE [None]
  - GASTROINTESTINAL HAEMORRHAGE [None]
  - GOITRE [None]
  - ILL-DEFINED DISORDER [None]
  - INFLAMMATORY BOWEL DISEASE [None]
  - IRON DEFICIENCY ANAEMIA [None]
